FAERS Safety Report 7997303-0 (Version None)
Quarter: 2011Q4

REPORT INFORMATION
  Report Type: 
  Country: None (occurrence: None)
  Receive Date: 20111221
  Receipt Date: 20111214
  Transmission Date: 20120403
  Serious: Yes (Other)
  Sender: FDA-Public Use
  Company Number: US-US-EMD SERONO, INC.-7102265

PATIENT
  Sex: Female

DRUGS (6)
  1. HYDROCODONE BITARTRATE [Concomitant]
     Indication: ARTHRALGIA
  2. OPANA ER [Concomitant]
     Indication: BACK PAIN
  3. REBIF [Suspect]
     Indication: MULTIPLE SCLEROSIS
     Route: 058
     Dates: start: 20050613
  4. HYDROCODONE BITARTRATE [Concomitant]
     Indication: BACK PAIN
  5. OPANA ER [Concomitant]
     Indication: ARTHRALGIA
  6. STEROIDS [Suspect]

REACTIONS (8)
  - INFLUENZA LIKE ILLNESS [None]
  - INJECTION SITE HAEMATOMA [None]
  - INJECTION SITE PAIN [None]
  - INJECTION SITE ERYTHEMA [None]
  - HIP ARTHROPLASTY [None]
  - FALL [None]
  - VISUAL IMPAIRMENT [None]
  - GAIT DISTURBANCE [None]
